FAERS Safety Report 8023527 (Version 5)
Quarter: 2012Q4

REPORT INFORMATION
  Report Type: 
  Country: US (occurrence: US)
  Receive Date: 20110706
  Receipt Date: 20121109
  Transmission Date: 20130627
  Serious: Yes (Other)
  Sender: FDA-Public Use
  Company Number: US-ROCHE-787502

PATIENT
  Age: 40 None
  Sex: Male
  Weight: 59.02 kg

DRUGS (1)
  1. ACCUTANE [Suspect]
     Indication: ACNE CYSTIC
     Route: 065

REACTIONS (7)
  - Inflammatory bowel disease [Unknown]
  - Gastrointestinal inflammation [Unknown]
  - Irritable bowel syndrome [Unknown]
  - Cholangitis sclerosing [Unknown]
  - Small intestinal obstruction [Unknown]
  - Gastroenteritis [Unknown]
  - Injury [Unknown]
